FAERS Safety Report 24577872 (Version 1)
Quarter: 2024Q4

REPORT INFORMATION
  Report Type: Spontaneous
  Country: JP (occurrence: JP)
  Receive Date: 20241104
  Receipt Date: 20241104
  Transmission Date: 20250115
  Serious: Yes (Other)
  Sender: MERCK
  Company Number: JP-009507513-2411JPN000326

PATIENT
  Age: 75 Year
  Sex: Male

DRUGS (3)
  1. PEMBROLIZUMAB [Suspect]
     Active Substance: PEMBROLIZUMAB
     Indication: Oesophageal cancer metastatic
     Dosage: 200 MG/BODY WEIGHT ON DAY 1, EVERY 3 WEEKS
  2. FLUOROURACIL [Concomitant]
     Active Substance: FLUOROURACIL
     Indication: Oesophageal cancer metastatic
     Dosage: 1,200 MG/BODY ON DAYS 1-5, EVERY 3 WEEKS
  3. CISPLATIN [Concomitant]
     Active Substance: CISPLATIN
     Indication: Oesophageal cancer metastatic
     Dosage: 120 MG/BODY WEIGHT ON DAY 1, EVERY 3 WEEKS

REACTIONS (4)
  - Lymphoproliferative disorder [Recovering/Resolving]
  - Epstein-Barr virus infection [Recovering/Resolving]
  - Dermatitis [Unknown]
  - Product use in unapproved indication [Unknown]
